FAERS Safety Report 5049815-X (Version None)
Quarter: 2006Q3

REPORT INFORMATION
  Report Type: 
  Country: None (occurrence: None)
  Receive Date: 20060706
  Receipt Date: 20060628
  Transmission Date: 20061208
  Serious: Yes (Other)
  Sender: FDA-Public Use
  Company Number: S06-USA-01131-02

PATIENT
  Weight: 3.2886 kg

DRUGS (3)
  1. LEXAPRO [Suspect]
     Dosage: 40 MG QD TRANSPLACENTAL
     Route: 064
     Dates: start: 20050101, end: 20060316
  2. LEXAPRO [Suspect]
     Dosage: 40 MG QD BF
     Route: 063
     Dates: start: 20060316
  3. ZYPREXA [Concomitant]

REACTIONS (4)
  - APGAR SCORE LOW [None]
  - DRUG EXPOSURE DURING PREGNANCY [None]
  - INFANTILE APNOEIC ATTACK [None]
  - PREMATURE BABY [None]
